FAERS Safety Report 7972034-1 (Version None)
Quarter: 2011Q4

REPORT INFORMATION
  Report Type: 
  Country: None (occurrence: None)
  Receive Date: 20111212
  Receipt Date: 20111205
  Transmission Date: 20120403
  Serious: Yes (Hospitalization)
  Sender: FDA-Public Use
  Company Number: NL-ABBOTT-11P-114-0729510-00

PATIENT
  Sex: Male
  Weight: 65 kg

DRUGS (11)
  1. HUMIRA [Suspect]
     Indication: CROHN'S DISEASE
     Route: 058
     Dates: start: 20110325, end: 20110601
  2. FOLIC ACID [Concomitant]
     Indication: VITAMIN SUPPLEMENTATION
     Dosage: ONCE EVERY 2 DAYS 1 TABLET
     Route: 048
     Dates: start: 20101101
  3. HUMIRA [Suspect]
     Route: 058
     Dates: start: 20110610
  4. OMEPRAZOLE [Concomitant]
     Indication: GASTRIC DISORDER
     Route: 048
     Dates: start: 20101101
  5. ACETAMINOPHEN [Concomitant]
     Indication: PRODUCT USED FOR UNKNOWN INDICATION
  6. CALCIUMCARBONATE/COLECALCIFEROL [Concomitant]
     Indication: VITAMIN SUPPLEMENTATION
     Dosage: ONCE DAILY 1 TABLET
     Route: 048
     Dates: start: 20101101
  7. PREDNISOLONE [Concomitant]
     Indication: ANTIINFLAMMATORY THERAPY
     Dosage: ONCE PER DAY
     Route: 048
     Dates: start: 20101101
  8. MERCAPTOPURINE [Concomitant]
     Indication: PRODUCT USED FOR UNKNOWN INDICATION
     Dates: start: 20110801
  9. HUMIRA [Suspect]
     Route: 058
     Dates: start: 20110101
  10. AZATHIOPRINE [Concomitant]
     Indication: CROHN'S DISEASE
     Route: 048
     Dates: end: 20110530
  11. MULTI-VITAMIN [Concomitant]
     Indication: PRODUCT USED FOR UNKNOWN INDICATION

REACTIONS (21)
  - JOINT SWELLING [None]
  - INFLUENZA LIKE ILLNESS [None]
  - IMMUNE SYSTEM DISORDER [None]
  - DIARRHOEA [None]
  - ARTHRITIS [None]
  - ACNE PUSTULAR [None]
  - JOINT STIFFNESS [None]
  - LYMPHOMA [None]
  - PYREXIA [None]
  - URTICARIA [None]
  - STAPHYLOCOCCAL SKIN INFECTION [None]
  - MONARTHRITIS [None]
  - ERYTHEMA NODOSUM [None]
  - RASH PUSTULAR [None]
  - CROHN'S DISEASE [None]
  - ABDOMINAL PAIN [None]
  - DIZZINESS [None]
  - ANORECTAL DISORDER [None]
  - OEDEMA PERIPHERAL [None]
  - INFECTION [None]
  - SYNCOPE [None]
